FAERS Safety Report 6923310-2 (Version None)
Quarter: 2010Q3

REPORT INFORMATION
  Report Type: 
  Country: None (occurrence: None)
  Receive Date: 20100813
  Receipt Date: 20100804
  Transmission Date: 20110219
  Serious: Yes (Other)
  Sender: FDA-Public Use
  Company Number: BR-ABBOTT-10P-020-0661357-00

PATIENT
  Age: 27 Year
  Sex: Female

DRUGS (6)
  1. DEPAKENE [Suspect]
     Indication: CONVULSION
     Dosage: DAILY DOSE: 2 UNITS
     Route: 048
     Dates: start: 20100720
  2. GARDENAL [Interacting]
     Indication: CONVULSION
     Dosage: TWICE A DAY
     Dates: start: 20050101
  3. TEGRETOL [Interacting]
     Indication: CONVULSION
     Dates: start: 20090101
  4. AMPLICTIL [Interacting]
     Indication: CONVULSION
     Dates: start: 20100401
  5. HIDANTAL [Interacting]
     Indication: CONVULSION
     Dosage: DAILY DOSE: 200MG
     Route: 048
     Dates: start: 20100401
  6. MELLARIL [Interacting]
     Indication: CONVULSION
     Dosage: DAILY DOSE: 250MG
     Route: 048

REACTIONS (17)
  - ABDOMINAL PAIN [None]
  - BACK PAIN [None]
  - CONSTIPATION [None]
  - CONVULSION [None]
  - CRYING [None]
  - DECREASED APPETITE [None]
  - DRUG INEFFECTIVE [None]
  - DRUG INTERACTION [None]
  - HEADACHE [None]
  - MENSTRUAL DISORDER [None]
  - MOOD ALTERED [None]
  - OROPHARYNGEAL PAIN [None]
  - PHYSICAL ABUSE [None]
  - SOMNOLENCE [None]
  - VERBAL ABUSE [None]
  - VOMITING [None]
  - WEIGHT INCREASED [None]
